FAERS Safety Report 5080193-6 (Version None)
Quarter: 2006Q3

REPORT INFORMATION
  Report Type: 
  Country: None (occurrence: None)
  Receive Date: 20060810
  Receipt Date: 20060725
  Transmission Date: 20061208
  Serious: Yes (Hospitalization)
  Sender: FDA-Public Use
  Company Number: US200603005278

PATIENT
  Age: 34 Year
  Sex: Female
  Weight: 66.7 kg

DRUGS (4)
  1. F1J-MC-HMEF DULOXETINE 60/120MG VS PLB I(DULOXETINE HYDROCHLORIDE) CAP [Suspect]
     Indication: FIBROMYALGIA
     Dosage: 120 MG, ORAL
     Route: 048
     Dates: start: 20051214, end: 20060319
  2. SYNTHROID [Concomitant]
  3. MULTIVITAMINS (ASCORBIC ACID, ERGOCALCIFEROL, FOLIC ACID, NICOTINAMIDE [Concomitant]
  4. DARVOCET-N 100 [Concomitant]

REACTIONS (11)
  - ALANINE AMINOTRANSFERASE INCREASED [None]
  - ASPARTATE AMINOTRANSFERASE INCREASED [None]
  - ASTHENIA [None]
  - CRYING [None]
  - DIZZINESS [None]
  - DYSPNOEA [None]
  - GAIT DISTURBANCE [None]
  - HOT FLUSH [None]
  - MUSCULAR WEAKNESS [None]
  - NIGHT SWEATS [None]
  - PARAESTHESIA [None]
